FAERS Safety Report 9225251 (Version 1)
Quarter: 2013Q1

REPORT INFORMATION
  Report Type: Spontaneous
  Country: US (occurrence: None)
  Receive Date: 20120912
  Receipt Date: 20120912
  Transmission Date: 20140127
  Serious: Yes (Disabling)
  Sender: FDA-Public Use
  Company Number: 2012SP027069

PATIENT
  Age: 53 Year
  Sex: Female

DRUGS (6)
  1. VICTRELIS (200 MG) [Suspect]
     Indication: HEPATITIS C
     Route: 048
     Dates: start: 201205
  2. RIBASPHERE [Suspect]
     Indication: HEPATITIS C
  3. PEGASYS [Suspect]
     Indication: HEPATITIS C
  4. BUSPIRONE [Concomitant]
  5. RANITIDINE [Concomitant]
  6. WELLBURTRIN SR [Concomitant]

REACTIONS (5)
  - Dyspnoea [None]
  - Gingival ulceration [None]
  - Anxiety [None]
  - Rash generalised [None]
  - Anaemia [None]
